FAERS Safety Report 9456386 (Version 4)
Quarter: 2018Q2

REPORT INFORMATION
  Report Type: Spontaneous
  Country: US (occurrence: US)
  Receive Date: 20130813
  Receipt Date: 20180507
  Transmission Date: 20180711
  Serious: Yes (Hospitalization, Disabling, Other)
  Sender: FDA-Public Use
  Company Number: US-009507513-1205USA00951

PATIENT
  Sex: Female

DRUGS (6)
  1. ALENDRONATE SODIUM. [Suspect]
     Active Substance: ALENDRONATE SODIUM
     Indication: OSTEOPOROSIS
     Dosage: 70 MG, UNK
     Dates: start: 20080325, end: 201104
  2. FOSAMAX [Suspect]
     Active Substance: ALENDRONATE SODIUM
     Indication: OSTEOPOROSIS
     Dosage: 70 MG, UNK
     Route: 048
     Dates: start: 20010409, end: 2008
  3. FOSAMAX PLUS D [Suspect]
     Active Substance: ALENDRONATE SODIUM\CHOLECALCIFEROL
     Route: 048
  4. ALENDRONATE SODIUM. [Suspect]
     Active Substance: ALENDRONATE SODIUM
     Dosage: 70 MG, UNK
     Dates: start: 20090622, end: 200909
  5. OS-CAL + D [Concomitant]
     Dosage: UNK, QD
  6. FOSAMAX [Suspect]
     Active Substance: ALENDRONATE SODIUM
     Indication: OSTEOPOROSIS
     Dosage: 10 MG, UNK
     Route: 048
     Dates: end: 200103

REACTIONS (21)
  - Hip arthroplasty [Recovered/Resolved]
  - Hypertension [Not Recovered/Not Resolved]
  - Arthritis [Unknown]
  - Biopsy breast [Unknown]
  - Arrhythmia [Recovered/Resolved]
  - Fracture nonunion [Recovering/Resolving]
  - Low turnover osteopathy [Unknown]
  - Rib fracture [Unknown]
  - Osteopenia [Unknown]
  - Ulna fracture [Unknown]
  - Thyroidectomy [Unknown]
  - Hysterectomy [Unknown]
  - Open reduction of fracture [Unknown]
  - Hip fracture [Unknown]
  - Osteoporosis [Unknown]
  - Gastrooesophageal reflux disease [Not Recovered/Not Resolved]
  - Femur fracture [Recovering/Resolving]
  - Stress fracture [Unknown]
  - Peripheral coldness [Unknown]
  - Deep vein thrombosis [Recovering/Resolving]
  - Pain in extremity [Unknown]

NARRATIVE: CASE EVENT DATE: 1996
